FAERS Safety Report 7001777-1 (Version None)
Quarter: 2010Q3

REPORT INFORMATION
  Report Type: 
  Country: None (occurrence: None)
  Receive Date: 20100920
  Receipt Date: 20080410
  Transmission Date: 20110219
  Serious: Yes (Other)
  Sender: FDA-Public Use
  Company Number: US-ASTRAZENECA-2007UW12853

PATIENT
  Age: 16151 Day
  Sex: Female
  Weight: 100.5 kg

DRUGS (10)
  1. SEROQUEL [Suspect]
     Indication: SLEEP DISORDER
     Route: 048
     Dates: start: 20060101, end: 20061001
  2. SEROQUEL [Suspect]
     Indication: NERVOUSNESS
     Route: 048
     Dates: start: 20060101, end: 20061001
  3. SEROQUEL [Suspect]
     Dosage: 200 - 800 MG DAILY
     Route: 048
     Dates: start: 20060102
  4. SEROQUEL [Suspect]
     Dosage: 200 - 800 MG DAILY
     Route: 048
     Dates: start: 20060102
  5. NEURONTIN [Concomitant]
     Dates: start: 20060102
  6. PREMARIN [Concomitant]
     Dates: start: 20060104
  7. KLONOPIN [Concomitant]
     Dosage: STRENGTH - 0.5 - 1 MG
     Dates: start: 20060106
  8. PROTONIX [Concomitant]
     Dates: start: 20040217
  9. ZOLOFT [Concomitant]
     Dates: start: 20060102
  10. PROMETHAZINE [Concomitant]
     Dates: start: 20060301

REACTIONS (1)
  - PANCREATITIS ACUTE [None]
